FAERS Safety Report 5091436-7 (Version None)
Quarter: 2006Q3

REPORT INFORMATION
  Report Type: 
  Country: None (occurrence: None)
  Receive Date: 20060824
  Receipt Date: 20060809
  Transmission Date: 20061208
  Serious: Yes (Hospitalization, Other)
  Sender: FDA-Public Use
  Company Number: PHBS2004US16121

PATIENT
  Age: 29 Year
  Sex: Male

DRUGS (6)
  1. CYCLOSPORINE [Suspect]
     Indication: COLITIS ULCERATIVE
     Dosage: 4 MG/KG/D, INTRAVENOUS
     Route: 042
  2. CYCLOSPORINE [Suspect]
     Indication: COLITIS ULCERATIVE
     Dosage: 8 MG/KG/D, ORAL
     Route: 048
  3. MERCAPTOPURINE (MERCAPTOPURINE) [Suspect]
  4. PREDNISONE [Suspect]
     Indication: COLITIS ULCERATIVE
     Dosage: 20 MG/D,
  5. INFLIXIMAB (INFLIXIMAB) [Suspect]
     Indication: COLITIS ULCERATIVE
     Dosage: 5 MG/KG, ONCE/SINGLE, INFUSION
  6. ASPIRIN [Concomitant]

REACTIONS (10)
  - B-CELL LYMPHOMA [None]
  - DEFAECATION URGENCY [None]
  - DIARRHOEA [None]
  - DRUG INEFFECTIVE [None]
  - EPSTEIN-BARR VIRUS INFECTION [None]
  - INTESTINAL ANASTOMOSIS [None]
  - INTESTINAL POLYP [None]
  - IRRITABLE BOWEL SYNDROME [None]
  - POUCHITIS [None]
  - WEIGHT DECREASED [None]
